FAERS Safety Report 9261528 (Version 2)
Quarter: 2013Q2

REPORT INFORMATION
  Report Type: Spontaneous
  Country: BR (occurrence: BR)
  Receive Date: 20130429
  Receipt Date: 20130429
  Transmission Date: 20140414
  Serious: Yes (Hospitalization, Other)
  Sender: FDA-Public Use
  Company Number: PHHY2013BR036760

PATIENT
  Age: 9 Year
  Sex: Female
  Weight: 38 kg

DRUGS (3)
  1. AMOXICILLIN SODIUM+POTASSIUM CLAVULANATE [Suspect]
     Indication: SINUSITIS
     Dosage: 5 ML, TID
     Route: 048
     Dates: start: 20130409
  2. DESALEX [Concomitant]
     Indication: RHINITIS ALLERGIC
  3. NASONEX [Concomitant]
     Indication: RHINITIS ALLERGIC

REACTIONS (4)
  - Colitis [Recovered/Resolved]
  - Haematochezia [Recovered/Resolved]
  - Nasopharyngitis [Recovered/Resolved]
  - Diarrhoea [Recovered/Resolved]
